FAERS Safety Report 11081128 (Version 1)
Quarter: 2015Q2

REPORT INFORMATION
  Report Type: Spontaneous
  Country: JP (occurrence: JP)
  Receive Date: 20150501
  Receipt Date: 20150501
  Transmission Date: 20150821
  Serious: Yes (Other)
  Sender: FDA-Public Use
  Company Number: JP-ELI_LILLY_AND_COMPANY-JP201504007700

PATIENT
  Age: 80 Year
  Sex: Female

DRUGS (3)
  1. FORTEO [Suspect]
     Active Substance: TERIPARATIDE
     Indication: OSTEOPOROSIS
     Dosage: UNK
     Route: 058
     Dates: start: 20141004
  2. MOHRUS [Concomitant]
     Active Substance: KETOPROFEN
     Route: 065
  3. LENDORMIN [Concomitant]
     Active Substance: BROTIZOLAM

REACTIONS (1)
  - Myelodysplastic syndrome [Not Recovered/Not Resolved]
